FAERS Safety Report 20093932 (Version 2)
Quarter: 2022Q1

REPORT INFORMATION
  Report Type: Report from Study
  Country: NL (occurrence: NL)
  Receive Date: 20211121
  Receipt Date: 20220131
  Transmission Date: 20220423
  Serious: Yes (Hospitalization)
  Sender: FDA-Public Use
  Company Number: NL-ABBVIE-21K-114-4167180-00

PATIENT
  Sex: Male

DRUGS (2)
  1. CARBIDOPA\LEVODOPA [Suspect]
     Active Substance: CARBIDOPA\LEVODOPA
     Indication: Parkinson^s disease
     Dosage: NIGHT MD: 0.0 ML, CND: 1.7 ML/H, END: 1.0 ML
     Route: 050
  2. CARBIDOPA\LEVODOPA [Suspect]
     Active Substance: CARBIDOPA\LEVODOPA

REACTIONS (10)
  - Pneumonia bacterial [Unknown]
  - Viral infection [Recovered/Resolved]
  - Weight decreased [Recovered/Resolved]
  - Hallucination [Unknown]
  - Dyspnoea [Recovering/Resolving]
  - Gastric disorder [Recovered/Resolved]
  - Weight increased [Not Recovered/Not Resolved]
  - Complication associated with device [Unknown]
  - Device issue [Unknown]
  - Cough [Recovered/Resolved]
